FAERS Safety Report 9926664 (Version 1)
Quarter: 2014Q1

REPORT INFORMATION
  Report Type: Spontaneous
  Country: US (occurrence: US)
  Receive Date: 20140226
  Receipt Date: 20140226
  Transmission Date: 20141002
  Serious: No
  Sender: FDA-Public Use
  Company Number: US-AMGEN-USASP2013077145

PATIENT
  Age: 53 Year
  Sex: Male

DRUGS (3)
  1. ENBREL [Suspect]
     Indication: RHEUMATOID ARTHRITIS
     Dosage: 50 MG, QWK
     Route: 058
     Dates: start: 201309, end: 20131016
  2. PLAVIX [Concomitant]
     Dosage: 75 MG, QD
  3. METHOTREXATE [Concomitant]
     Dosage: 15 MG, QWK

REACTIONS (2)
  - Sluggishness [Recovered/Resolved]
  - Injection site bruising [Recovered/Resolved]
